FAERS Safety Report 7306692-1 (Version None)
Quarter: 2011Q1

REPORT INFORMATION
  Report Type: 
  Country: None (occurrence: None)
  Receive Date: 20110222
  Receipt Date: 20110214
  Transmission Date: 20110831
  Serious: Yes (Hospitalization)
  Sender: FDA-Public Use
  Company Number: US-US-EMD SERONO, INC.-7026528

PATIENT
  Sex: Female

DRUGS (8)
  1. ATENOLOL [Concomitant]
     Indication: PALPITATIONS
  2. LORAZEPAM [Concomitant]
     Indication: ANXIETY
  3. AMBIEN [Concomitant]
     Indication: INSOMNIA
  4. REBIF [Suspect]
     Indication: MULTIPLE SCLEROSIS
     Route: 058
     Dates: start: 20100916
  5. ALENDRONATE [Concomitant]
     Indication: OSTEOPOROSIS
  6. SYNTHROID [Concomitant]
     Indication: HYPOTHYROIDISM
  7. PROZAC [Concomitant]
     Indication: DEPRESSION
  8. OMEPRAZOLE [Concomitant]
     Indication: GASTROOESOPHAGEAL REFLUX DISEASE

REACTIONS (4)
  - FALL [None]
  - MUSCLE TWITCHING [None]
  - UPPER LIMB FRACTURE [None]
  - WRIST FRACTURE [None]
